FAERS Safety Report 5367143-X (Version None)
Quarter: 2007Q2

REPORT INFORMATION
  Report Type: 
  Country: None (occurrence: None)
  Receive Date: 20070622
  Receipt Date: 20061213
  Transmission Date: 20071010
  Serious: Yes (Hospitalization)
  Sender: FDA-Public Use
  Company Number: US-BRISTOL-MYERS SQUIBB COMPANY-13616768

PATIENT
  Sex: Male

DRUGS (10)
  1. SINEMET [Suspect]
     Indication: PARKINSON'S DISEASE
     Route: 048
  2. OLANZAPINE [Suspect]
     Indication: MAJOR DEPRESSION
     Route: 048
  3. ACETAMINOPHEN [Concomitant]
  4. ALENDRONATE SODIUM [Concomitant]
  5. ASPIRIN [Concomitant]
  6. CALCIUM + VITAMIN D [Concomitant]
  7. DOCUSATE SODIUM [Concomitant]
  8. VITAMINS + MINERALS [Concomitant]
  9. OMEPRAZOLE [Concomitant]
  10. PAROXETINE HCL [Concomitant]

REACTIONS (2)
  - FALL [None]
  - HYPOTENSION [None]
